FAERS Safety Report 5395380-7 (Version None)
Quarter: 2007Q3

REPORT INFORMATION
  Report Type: 
  Country: None (occurrence: None)
  Receive Date: 20070724
  Receipt Date: 20070709
  Transmission Date: 20080115
  Serious: Yes (Hospitalization)
  Sender: FDA-Public Use
  Company Number: GB-GENENTECH-244923

PATIENT
  Sex: Female

DRUGS (4)
  1. TRASTUZUMAB [Suspect]
     Indication: BREAST CANCER
     Route: 042
     Dates: start: 20070220, end: 20070403
  2. CAPECITABINE [Suspect]
     Indication: BREAST CANCER
     Dosage: 1250 MG/M2, BID
     Route: 048
     Dates: start: 20060808, end: 20070109
  3. EPIRUBICIN [Suspect]
     Indication: BREAST CANCER
     Dosage: 100 MG/M2, Q3W
     Route: 042
     Dates: start: 20060808, end: 20070109
  4. LETROZOLE [Concomitant]
     Indication: DRUG USE FOR UNKNOWN INDICATION

REACTIONS (1)
  - CERVICAL MYELOPATHY [None]
